FAERS Safety Report 19467289 (Version 1)
Quarter: 2021Q2

REPORT INFORMATION
  Report Type: Report from Study
  Country: EG (occurrence: EG)
  Receive Date: 20210628
  Receipt Date: 20210628
  Transmission Date: 20210717
  Serious: Yes (Other)
  Sender: FDA-Public Use
  Company Number: NVSC2021EG124843

PATIENT
  Age: 37 Year
  Sex: Female

DRUGS (6)
  1. COSENTYX [Suspect]
     Active Substance: SECUKINUMAB
     Dosage: 300 MG, QMO  (2 PREFILLED PENS PER MONTH)
     Route: 065
     Dates: start: 20210601
  2. COSENTYX [Suspect]
     Active Substance: SECUKINUMAB
     Dosage: 300 MG, QMO (2 PREFILLED PENS PER MONTH)
     Route: 065
     Dates: start: 202007, end: 202012
  3. ALLERGEX [Concomitant]
     Indication: PRODUCT USED FOR UNKNOWN INDICATION
     Dosage: 2 DF, QD
     Route: 065
  4. BRUFEN [Concomitant]
     Active Substance: IBUPROFEN
     Indication: PRODUCT USED FOR UNKNOWN INDICATION
     Dosage: UNK, PRN (WHEN NEEDED)
     Route: 065
  5. COSENTYX [Suspect]
     Active Substance: SECUKINUMAB
     Indication: PSORIASIS
     Dosage: 300 MG, QMO (2 PREFILLED PENS PER MONTH)
     Route: 065
     Dates: start: 201806, end: 20191024
  6. METHOTREXATE. [Concomitant]
     Active Substance: METHOTREXATE
     Indication: PRODUCT USED FOR UNKNOWN INDICATION
     Dosage: UNK UNK, QW (1 CM ONCE WEEKLY)
     Route: 065
     Dates: end: 202104

REACTIONS (13)
  - Skin irritation [Recovering/Resolving]
  - Erythema [Recovering/Resolving]
  - Skin exfoliation [Recovering/Resolving]
  - Psoriasis [Recovered/Resolved]
  - Product dose omission issue [Recovering/Resolving]
  - Dermal cyst [Recovering/Resolving]
  - Rash [Recovering/Resolving]
  - Inflammation [Recovering/Resolving]
  - Skin warm [Recovering/Resolving]
  - Coagulopathy [Recovering/Resolving]
  - Skin burning sensation [Recovering/Resolving]
  - Fatigue [Recovering/Resolving]
  - Insomnia [Recovering/Resolving]

NARRATIVE: CASE EVENT DATE: 201911
